FAERS Safety Report 15157457 (Version 6)
Quarter: 2020Q3

REPORT INFORMATION
  Report Type: Report from Study
  Country: FR (occurrence: FR)
  Receive Date: 20180718
  Receipt Date: 20181004
  Transmission Date: 20201104
  Serious: Yes (Death, Hospitalization)
  Sender: FDA-Public Use
  Company Number: FR-ROCHE-2154951

PATIENT
  Age: 70 Year
  Sex: Male
  Weight: 68.5 kg

DRUGS (2)
  1. OBINUTUZUMAB. [Suspect]
     Active Substance: OBINUTUZUMAB
     Indication: DIFFUSE LARGE B-CELL LYMPHOMA
     Dosage: LAST ADMINISTRATION DATE BEFORE SAE  22/MAY/2018:1000 MG?1000MG OF GA101 ON D8, D15 AND D22OF CYCLE
     Route: 042
     Dates: start: 20160502
  2. LENALIDOMIDE [Suspect]
     Active Substance: LENALIDOMIDE
     Indication: DIFFUSE LARGE B-CELL LYMPHOMA
     Dosage: LAST ADMINISTRATION ON 09/FEB/2017?10/15/20/25MG (PHASE I PART) OR AT RECOMMENDED DOSE (PHASE II PAR
     Route: 048
     Dates: start: 20160502

REACTIONS (2)
  - Lung adenocarcinoma [Fatal]
  - Pleural effusion [Fatal]

NARRATIVE: CASE EVENT DATE: 20180711
